FAERS Safety Report 9681506 (Version 1)
Quarter: 2013Q4

REPORT INFORMATION
  Report Type: Spontaneous
  Country: DE (occurrence: None)
  Receive Date: 20131107
  Receipt Date: 20131107
  Transmission Date: 20140711
  Serious: Yes (Hospitalization, Other)
  Sender: FDA-Public Use
  Company Number: 1311-1422

PATIENT
  Age: 65 Year
  Sex: Female

DRUGS (4)
  1. EYLEA (AFLIBERCEPT) (SOLUTION FOR INJECTION) (AFLIBERCEPT) [Suspect]
     Indication: AGE-RELATED MACULAR DEGENERATION
     Dosage: INTRAOCULAR
     Dates: start: 20121109, end: 20121109
  2. TACROLIMUS (TACROLIMUS) [Concomitant]
  3. PREDNISOLONE (PREDNISOLONE) [Concomitant]
  4. VITAMIN D (ERGOCALICIFEROL) [Concomitant]

REACTIONS (1)
  - Hypertension [None]
